FAERS Safety Report 6077661-7 (Version None)
Quarter: 2009Q1

REPORT INFORMATION
  Report Type: 
  Country: None (occurrence: None)
  Receive Date: 20090213
  Receipt Date: 20090205
  Transmission Date: 20090719
  Serious: Yes (Death, Hospitalization)
  Sender: FDA-Public Use
  Company Number: US-JNJFOC-20090202457

PATIENT
  Age: 73 Year
  Sex: Female
  Weight: 75.3 kg

DRUGS (8)
  1. REMICADE [Suspect]
     Indication: RHEUMATOID ARTHRITIS
     Route: 042
  2. PREDNISONE [Suspect]
     Indication: DRUG USE FOR UNKNOWN INDICATION
     Route: 048
  3. METHOTREXATE [Suspect]
     Indication: DRUG USE FOR UNKNOWN INDICATION
     Route: 048
  4. FOLIC ACID [Concomitant]
     Route: 048
  5. VERELAN [Concomitant]
     Route: 048
  6. AMILORIDE HYDROCHLORIDE [Concomitant]
     Route: 048
  7. CELEBREX [Concomitant]
     Route: 048
  8. SYNTHROID [Concomitant]
     Route: 048

REACTIONS (1)
  - HISTOPLASMOSIS DISSEMINATED [None]
